FAERS Safety Report 6402952-7 (Version None)
Quarter: 2009Q4

REPORT INFORMATION
  Report Type: 
  Country: None (occurrence: None)
  Receive Date: 20091016
  Receipt Date: 20091008
  Transmission Date: 20100525
  Serious: Yes (Other)
  Sender: FDA-Public Use
  Company Number: US-WYE-H11560209

PATIENT

DRUGS (1)
  1. TYGACIL [Suspect]
     Indication: INFECTION
     Dosage: UNKNOWN
     Route: 042

REACTIONS (2)
  - PANCREATITIS [None]
  - RENAL FAILURE [None]
